FAERS Safety Report 11493548 (Version 1)
Quarter: 2015Q3

REPORT INFORMATION
  Report Type: Spontaneous
  Country: US (occurrence: None)
  Receive Date: 20150910
  Receipt Date: 20150910
  Transmission Date: 20151125
  Serious: Yes (Hospitalization)
  Sender: FDA-Public Use
  Company Number: None

PATIENT
  Age: 48 Year
  Sex: Male
  Weight: 97 kg

DRUGS (9)
  1. LOVAZA [Concomitant]
     Active Substance: OMEGA-3-ACID ETHYL ESTERS
  2. MULTIVITAMIN [Concomitant]
     Active Substance: VITAMINS
  3. MILK THISTLE [Concomitant]
     Active Substance: MILK THISTLE
  4. LANTUS [Concomitant]
     Active Substance: INSULIN GLARGINE
  5. ASPIRIN. [Concomitant]
     Active Substance: ASPIRIN
  6. INVOKANA [Suspect]
     Active Substance: CANAGLIFLOZIN
     Indication: TYPE 2 DIABETES MELLITUS
     Route: 048
  7. LISINOPRIL. [Concomitant]
     Active Substance: LISINOPRIL
  8. APIDRA [Concomitant]
     Active Substance: INSULIN GLULISINE
  9. VITAMIN C [Concomitant]
     Active Substance: ASCORBIC ACID

REACTIONS (2)
  - Metabolic acidosis [None]
  - Dyspnoea [None]

NARRATIVE: CASE EVENT DATE: 20150908
